FAERS Safety Report 9476160 (Version 2)
Quarter: 2013Q3

REPORT INFORMATION
  Report Type: Spontaneous
  Country: CA (occurrence: CA)
  Receive Date: 20130826
  Receipt Date: 20130903
  Transmission Date: 20140515
  Serious: No
  Sender: FDA-Public Use
  Company Number: CA-009507513-1308CAN005776

PATIENT
  Age: 40 Year
  Sex: Female

DRUGS (1)
  1. DR. SCHOLL^S SKIN TAG REMOVER [Suspect]
     Indication: ACROCHORDON EXCISION

REACTIONS (3)
  - Application site burn [Not Recovered/Not Resolved]
  - Hyperaesthesia [Not Recovered/Not Resolved]
  - Pain [Not Recovered/Not Resolved]
